FAERS Safety Report 7255715-7 (Version None)
Quarter: 2011Q1

REPORT INFORMATION
  Report Type: 
  Country: None (occurrence: None)
  Receive Date: 20110129
  Receipt Date: 20100816
  Transmission Date: 20110831
  Serious: No
  Sender: FDA-Public Use
  Company Number: US-ABBOTT-10P-163-0664911-00

PATIENT
  Sex: Female

DRUGS (4)
  1. MOBIC [Concomitant]
     Indication: PAIN
  2. METHOTREXATE [Concomitant]
     Indication: PRODUCT USED FOR UNKNOWN INDICATION
     Dates: end: 20100629
  3. HUMIRA [Suspect]
     Indication: PSORIASIS
  4. HUMIRA [Suspect]
     Indication: PSORIATIC ARTHROPATHY
     Dates: start: 20090401, end: 20100629

REACTIONS (2)
  - MUSCULOSKELETAL PAIN [None]
  - ARTHRALGIA [None]
